FAERS Safety Report 10953386 (Version 1)
Quarter: 2015Q1

REPORT INFORMATION
  Report Type: Spontaneous
  Country: JP (occurrence: None)
  Receive Date: 20150323
  Receipt Date: 20150323
  Transmission Date: 20150721
  Serious: Yes (Death, Life-Threatening, Other)
  Sender: FDA-Public Use
  Company Number: 2015CVI00004

PATIENT
  Age: 69 Year
  Sex: Male
  Weight: 56 kg

DRUGS (17)
  1. RANITIDINE HCL [Suspect]
     Active Substance: RANITIDINE HYDROCHLORIDE
     Indication: PROPHYLAXIS AGAINST GASTROINTESTINAL ULCER
     Dates: start: 20130112
  2. ATOVAQUONE. [Suspect]
     Active Substance: ATOVAQUONE
     Indication: PNEUMOCYSTIS JIROVECII PNEUMONIA
     Route: 048
     Dates: start: 20130118, end: 20130123
  3. ENDOXAN (CYCLOPHOSPHAMIDE) [Suspect]
     Active Substance: CYCLOPHOSPHAMIDE
     Indication: ALLERGIC GRANULOMATOUS ANGIITIS
     Route: 048
     Dates: start: 20120511, end: 201211
  4. ITRACONAZOLE. [Suspect]
     Active Substance: ITRACONAZOLE
     Route: 048
     Dates: start: 20121228, end: 20130123
  5. FUROSEMIDE. [Suspect]
     Active Substance: FUROSEMIDE
     Route: 042
     Dates: start: 20130117, end: 20130121
  6. SOLU-MEDROL [Suspect]
     Active Substance: METHYLPREDNISOLONE SODIUM SUCCINATE
     Route: 042
     Dates: start: 20121228, end: 20121230
  7. PREDONINE [Suspect]
     Active Substance: PREDNISOLONE\PREDNISOLONE ACETATE\PREDNISOLONE SODIUM SUCCINATE
     Indication: ALLERGIC GRANULOMATOUS ANGIITIS
     Dates: start: 201210, end: 20121220
  8. FOY [Suspect]
     Active Substance: GABEXATE MESYLATE
     Route: 042
     Dates: start: 20130113
  9. AZATHIOPRINE. [Suspect]
     Active Substance: AZATHIOPRINE
     Indication: ALLERGIC GRANULOMATOUS ANGIITIS
     Route: 048
     Dates: start: 201211, end: 20121219
  10. FUNGIZONE [Suspect]
     Active Substance: AMPHOTERICIN B
     Route: 048
     Dates: start: 20121224
  11. MEROPEN (MEROPENEM) [Suspect]
     Active Substance: MEROPENEM
     Route: 042
     Dates: start: 20130113, end: 20130123
  12. DORMICUM [Suspect]
     Active Substance: MIDAZOLAM\MIDAZOLAM HYDROCHLORIDE
     Dates: start: 20130112
  13. FUNGUARD [Suspect]
     Active Substance: MICAFUNGIN SODIUM
     Route: 042
     Dates: start: 20130119, end: 20130121
  14. VALIXA (VALGANCICLOVIR) TABLET [Suspect]
     Active Substance: VALGANCICLOVIR
     Route: 048
     Dates: start: 20130115, end: 20130122
  15. ELASPOL [Suspect]
     Active Substance: SIVELESTAT SODIUM
     Route: 042
     Dates: start: 20130112
  16. AMBISOME [Suspect]
     Active Substance: AMPHOTERICIN B
     Route: 042
     Dates: start: 20130122
  17. KETALAR [Suspect]
     Active Substance: KETAMINE HYDROCHLORIDE
     Dates: start: 20130112

REACTIONS (11)
  - Hepatic function abnormal [None]
  - Rash [None]
  - Hypercapnia [None]
  - Gamma-glutamyltransferase increased [None]
  - Pneumocystis jirovecii pneumonia [None]
  - Cytomegalovirus infection [None]
  - Aspartate aminotransferase increased [None]
  - Immunodeficiency [None]
  - Bronchopulmonary aspergillosis [None]
  - Pneumonia [None]
  - Blood bilirubin increased [None]

NARRATIVE: CASE EVENT DATE: 20130119
